FAERS Safety Report 5870610-3 (Version None)
Quarter: 2008Q3

REPORT INFORMATION
  Report Type: 
  Country: None (occurrence: None)
  Receive Date: 20080904
  Receipt Date: 20080901
  Transmission Date: 20090109
  Serious: Yes (Hospitalization)
  Sender: FDA-Public Use
  Company Number: B0533606A

PATIENT
  Age: 71 Year
  Sex: Female

DRUGS (7)
  1. VALTREX [Suspect]
     Indication: HERPES ZOSTER
     Dosage: 1000MG THREE TIMES PER DAY
     Route: 048
     Dates: start: 20080804, end: 20080806
  2. LOXONIN [Suspect]
     Indication: ANALGESIA
     Dosage: 60MG THREE TIMES PER DAY
     Route: 048
     Dates: start: 20080801, end: 20080807
  3. MUCOSTA [Concomitant]
     Indication: GASTRITIS PROPHYLAXIS
     Dosage: 300MG PER DAY
     Route: 048
     Dates: start: 20080801, end: 20080807
  4. CYANOCOBALAMIN [Concomitant]
     Indication: NEUROLOGICAL SYMPTOM
     Dosage: 1500MCG PER DAY
     Route: 048
     Dates: start: 20080804
  5. LANSOPRAZOLE [Concomitant]
     Dosage: 30MG PER DAY
     Route: 048
  6. NORVASC [Concomitant]
     Dosage: 2.5MG PER DAY
     Route: 048
  7. MICARDIS [Concomitant]
     Dosage: 60MG PER DAY
     Route: 048

REACTIONS (6)
  - DECREASED APPETITE [None]
  - DIZZINESS [None]
  - DYSLALIA [None]
  - ENCEPHALOPATHY [None]
  - NAUSEA [None]
  - RENAL FAILURE ACUTE [None]
